FAERS Safety Report 5161115-6 (Version None)
Quarter: 2006Q4

REPORT INFORMATION
  Report Type: 
  Country: None (occurrence: None)
  Receive Date: 20061130
  Receipt Date: 20061121
  Transmission Date: 20070319
  Serious: Yes (Other)
  Sender: FDA-Public Use
  Company Number: US-AVENTIS-200619573US

PATIENT
  Age: 26 Year
  Sex: Female

DRUGS (1)
  1. ALLEGRA-D 12 HOUR [Suspect]
     Indication: NASAL CONGESTION
     Dosage: DOSE: UNKNOWN
     Route: 048
     Dates: start: 20061121, end: 20061121

REACTIONS (1)
  - FOREIGN BODY TRAUMA [None]
